FAERS Safety Report 6392229-0 (Version None)
Quarter: 2009Q4

REPORT INFORMATION
  Report Type: 
  Country: None (occurrence: None)
  Receive Date: 20091005
  Receipt Date: 20090929
  Transmission Date: 20100525
  Serious: Yes (Hospitalization)
  Sender: FDA-Public Use
  Company Number: CERZ-1000922

PATIENT
  Age: 61 Year
  Sex: Female
  Weight: 77.5 kg

DRUGS (7)
  1. CEREZYME [Suspect]
     Indication: GAUCHER'S DISEASE
     Dosage: 30 U/KG, INTRAVENOUS
     Route: 042
     Dates: start: 19980123
  2. ADVAIR DISKUS 100/50 [Concomitant]
  3. NICOTINE [Concomitant]
  4. SPIRIVA [Concomitant]
  5. VITAMIN D [Concomitant]
  6. SALBUTAMOL (SALBUTAMOL SULFATE) [Concomitant]
  7. TIOTROPIUM BROMIDE (TIOTROPIUM BROMIDE) [Concomitant]

REACTIONS (2)
  - CHRONIC OBSTRUCTIVE PULMONARY DISEASE [None]
  - PNEUMONIA [None]
